FAERS Safety Report 16472127 (Version 2)
Quarter: 2019Q3

REPORT INFORMATION
  Report Type: Report from Study
  Country: None (occurrence: US)
  Receive Date: 20190625
  Receipt Date: 20190717
  Transmission Date: 20191004
  Serious: Yes (Death, Hospitalization)
  Sender: FDA-Public Use
  Company Number: US-ABBVIE-19K-163-2831404-00

PATIENT
  Age: 75 Year
  Sex: Male
  Weight: 43.1 kg

DRUGS (1)
  1. VENCLEXTA [Suspect]
     Active Substance: VENETOCLAX
     Indication: MYELODYSPLASTIC SYNDROME
     Route: 048
     Dates: start: 20181002, end: 20190326

REACTIONS (3)
  - Infection [Fatal]
  - Myelodysplastic syndrome [Fatal]
  - Intentional product use issue [Unknown]

NARRATIVE: CASE EVENT DATE: 20190314
